FAERS Safety Report 13648753 (Version 1)
Quarter: 2017Q2

REPORT INFORMATION
  Report Type: Spontaneous
  Country: US (occurrence: US)
  Receive Date: 20170613
  Receipt Date: 20170613
  Transmission Date: 20170830
  Serious: No
  Sender: FDA-Public Use
  Company Number: US-ABBVIE-16P-163-1698511-00

PATIENT
  Age: 66 Year
  Sex: Female
  Weight: 61.29 kg

DRUGS (3)
  1. K-TAB [Suspect]
     Active Substance: POTASSIUM CHLORIDE
     Indication: HYPOKALAEMIA
     Route: 048
     Dates: start: 20160706, end: 20160804
  2. TRAZODONE [Concomitant]
     Active Substance: TRAZODONE HYDROCHLORIDE
     Indication: INSOMNIA
  3. LAMICTAL [Concomitant]
     Active Substance: LAMOTRIGINE
     Indication: BACK PAIN

REACTIONS (2)
  - Medication residue present [Recovered/Resolved]
  - Blood potassium decreased [Not Recovered/Not Resolved]

NARRATIVE: CASE EVENT DATE: 201607
